FAERS Safety Report 12168487 (Version 2)
Quarter: 2016Q2

REPORT INFORMATION
  Report Type: Spontaneous
  Country: US (occurrence: US)
  Receive Date: 20160310
  Receipt Date: 20160512
  Transmission Date: 20160815
  Serious: No
  Sender: FDA-Public Use
  Company Number: US-PFIZER INC-2016139951

PATIENT
  Age: 82 Year
  Sex: Female

DRUGS (29)
  1. DYRENIUM [Suspect]
     Active Substance: TRIAMTERENE
     Dosage: UNK
  2. ASPIRIN. [Suspect]
     Active Substance: ASPIRIN
     Dosage: UNK
  3. DIOVAN [Suspect]
     Active Substance: VALSARTAN
     Dosage: UNK
  4. LEXAPRO [Suspect]
     Active Substance: ESCITALOPRAM OXALATE
     Dosage: UNK
  5. CALCIUM CARBONATE. [Suspect]
     Active Substance: CALCIUM CARBONATE
     Dosage: 600 MG, UNK
  6. TRAZODONE HYDROCHLORIDE. [Suspect]
     Active Substance: TRAZODONE HYDROCHLORIDE
     Dosage: UNK
  7. PROVENTIL [Suspect]
     Active Substance: ALBUTEROL
     Dosage: UNK
  8. HOMATROPINE METHYLBROMIDE/HYDROCODONE BITARTRATE [Suspect]
     Active Substance: HOMATROPINE METHYLBROMIDE\HYDROCODONE BITARTRATE
     Dosage: UNK
  9. EFFEXOR XR [Suspect]
     Active Substance: VENLAFAXINE HYDROCHLORIDE
     Dosage: UNK
  10. SONATA [Suspect]
     Active Substance: ZALEPLON
     Dosage: UNK
  11. PROZAC [Suspect]
     Active Substance: FLUOXETINE HYDROCHLORIDE
     Dosage: UNK
  12. RHINOCORT AQUA [Suspect]
     Active Substance: BUDESONIDE
     Dosage: UNK
  13. TRAMADOL. [Suspect]
     Active Substance: TRAMADOL
     Dosage: UNK
  14. NAPROXEN SODIUM. [Suspect]
     Active Substance: NAPROXEN SODIUM
     Dosage: UNK
  15. CEFUROXIME SODIUM. [Suspect]
     Active Substance: CEFUROXIME SODIUM
     Dosage: UNK
  16. ULTRAM [Suspect]
     Active Substance: TRAMADOL HYDROCHLORIDE
     Dosage: UNK
  17. XANAX [Suspect]
     Active Substance: ALPRAZOLAM
     Dosage: UNK
  18. KETEK [Suspect]
     Active Substance: TELITHROMYCIN
     Dosage: UNK
  19. QVAR [Suspect]
     Active Substance: BECLOMETHASONE DIPROPIONATE
     Dosage: UNK
  20. TRIAMTERENE AND HYDROCHLOROTHIAZIDE [Suspect]
     Active Substance: HYDROCHLOROTHIAZIDE\TRIAMTERENE
     Dosage: UNK
  21. NORVASC [Suspect]
     Active Substance: AMLODIPINE BESYLATE
     Dosage: UNK
  22. ZOLOFT [Suspect]
     Active Substance: SERTRALINE HYDROCHLORIDE
     Dosage: UNK
  23. ZITHROMAX [Suspect]
     Active Substance: AZITHROMYCIN DIHYDRATE
     Dosage: UNK
  24. FUROSEMIDE. [Suspect]
     Active Substance: FUROSEMIDE
     Dosage: UNK
  25. PREDNISONE. [Suspect]
     Active Substance: PREDNISONE
     Dosage: UNK
  26. LISINOPRIL. [Suspect]
     Active Substance: LISINOPRIL
     Dosage: UNK
  27. AMOXICILLIN. [Suspect]
     Active Substance: AMOXICILLIN
     Dosage: UNK
  28. WELLBUTRIN [Suspect]
     Active Substance: BUPROPION HYDROCHLORIDE
     Dosage: UNK
  29. BIAXIN [Suspect]
     Active Substance: CLARITHROMYCIN
     Dosage: UNK

REACTIONS (1)
  - Drug hypersensitivity [Unknown]
